FAERS Safety Report 5788572-6 (Version None)
Quarter: 2008Q2

REPORT INFORMATION
  Report Type: 
  Country: None (occurrence: None)
  Receive Date: 20080618
  Receipt Date: 20080103
  Transmission Date: 20081010
  Serious: Yes (Other)
  Sender: FDA-Public Use
  Company Number: 200810066US

PATIENT
  Age: 57 Year
  Sex: Female
  Weight: 65.3 kg

DRUGS (10)
  1. LANTUS [Suspect]
     Indication: DIABETES MELLITUS
     Dosage: 41 U INJ
     Dates: start: 20070101
  2. JANUVIA [Concomitant]
  3. PIOGLITAZONE [Concomitant]
  4. LISINOPRIL [Concomitant]
  5. LEVOTHYROXINE SODIUM (LEVOXYL) [Concomitant]
  6. SIMVASTATIN, EZETIMIBE (VYTORIN) [Concomitant]
  7. GABAPENTIN [Concomitant]
  8. SERTRALINE (ZOLOFT /01011401/) [Concomitant]
  9. QUETIAPINE FUMARATE (SEROQUEL /01270902/) [Concomitant]
  10. ATIVAN [Concomitant]

REACTIONS (2)
  - HYPERGLYCAEMIA [None]
  - HYPOGLYCAEMIA [None]
